FAERS Safety Report 23334221 (Version 2)
Quarter: 2023Q4

REPORT INFORMATION
  Report Type: Spontaneous
  Country: US (occurrence: US)
  Receive Date: 20231223
  Receipt Date: 20231231
  Transmission Date: 20240110
  Serious: No
  Sender: FDA-Public Use
  Company Number: US-JNJFOC-20231250579

PATIENT
  Age: 78 Year
  Sex: Male

DRUGS (1)
  1. BALVERSA [Suspect]
     Active Substance: ERDAFITINIB
     Indication: Metastatic carcinoma of the bladder
     Route: 048
     Dates: start: 20231125

REACTIONS (2)
  - Blood phosphorus abnormal [Unknown]
  - Eye swelling [Unknown]

NARRATIVE: CASE EVENT DATE: 20231215
